FAERS Safety Report 19097251 (Version 2)
Quarter: 2021Q2

REPORT INFORMATION
  Report Type: Spontaneous
  Country: BR (occurrence: BR)
  Receive Date: 20210406
  Receipt Date: 20210603
  Transmission Date: 20210717
  Serious: Yes (Other)
  Sender: FDA-Public Use
  Company Number: BR-SA-2021SA096434

PATIENT
  Sex: Female

DRUGS (2)
  1. FABRAZYME [Suspect]
     Active Substance: AGALSIDASE BETA
     Dosage: 2 VIALS, Q15D
     Route: 041
     Dates: start: 2021
  2. FABRAZYME [Suspect]
     Active Substance: AGALSIDASE BETA

REACTIONS (7)
  - Condition aggravated [Recovering/Resolving]
  - Arthralgia [Recovering/Resolving]
  - Ectopic pregnancy termination [Unknown]
  - Pain [Unknown]
  - Hypertension [Recovering/Resolving]
  - Pain in extremity [Recovering/Resolving]
  - Drug exposure before pregnancy [Unknown]
